FAERS Safety Report 6108231-X (Version None)
Quarter: 2009Q1

REPORT INFORMATION
  Report Type: 
  Country: None (occurrence: None)
  Receive Date: 20090304
  Receipt Date: 20080616
  Transmission Date: 20090719
  Serious: Yes (Hospitalization)
  Sender: FDA-Public Use
  Company Number: US-001223

PATIENT
  Age: 85 Year
  Sex: Female
  Weight: 71.2 kg

DRUGS (3)
  1. ISOVUE-370 [Suspect]
     Indication: ABDOMINAL PAIN
     Dosage: 94ML QD INTRAVENOUS (NOT OTHERWISE SPECIFIED)
     Route: 042
     Dates: start: 20080606, end: 20080606
  2. ISOVUE-370 [Suspect]
     Indication: COMPUTERISED TOMOGRAM ABDOMEN
     Dosage: 94ML QD INTRAVENOUS (NOT OTHERWISE SPECIFIED)
     Route: 042
     Dates: start: 20080606, end: 20080606
  3. ISOVUE-370 [Suspect]
     Indication: HAEMATOCHEZIA
     Dosage: 94ML QD INTRAVENOUS (NOT OTHERWISE SPECIFIED)
     Route: 042
     Dates: start: 20080606, end: 20080606

REACTIONS (1)
  - ANAPHYLACTOID REACTION [None]
